FAERS Safety Report 14020964 (Version 1)
Quarter: 2017Q3

REPORT INFORMATION
  Report Type: Spontaneous
  Country: PT (occurrence: PT)
  Receive Date: 20170928
  Receipt Date: 20170928
  Transmission Date: 20171128
  Serious: Yes (Hospitalization)
  Sender: FDA-Public Use
  Company Number: PT-PERRIGO-17PT027034

PATIENT
  Age: 47 Year
  Sex: Female

DRUGS (9)
  1. AMOXICILLIN CLAVULANIC ACID [Concomitant]
     Active Substance: AMOXICILLIN\CLAVULANIC ACID
     Indication: OROPHARYNGEAL PAIN
     Dosage: UNK
     Route: 065
  2. AMOXICILLIN CLAVULANIC ACID [Concomitant]
     Active Substance: AMOXICILLIN\CLAVULANIC ACID
     Indication: PYREXIA
  3. AMOXICILLIN CLAVULANIC ACID [Concomitant]
     Active Substance: AMOXICILLIN\CLAVULANIC ACID
     Indication: ASTHENIA
  4. AMOXICILLIN CLAVULANIC ACID [Concomitant]
     Active Substance: AMOXICILLIN\CLAVULANIC ACID
     Indication: MYALGIA
  5. IBUPROFEN. [Suspect]
     Active Substance: IBUPROFEN
     Indication: PAIN
     Dosage: 600 MG, PRN
     Route: 048
  6. ANTIBIOTICS [Concomitant]
     Active Substance: UNSPECIFIED INGREDIENT
     Indication: ASTHENIA
  7. ANTIBIOTICS [Concomitant]
     Active Substance: UNSPECIFIED INGREDIENT
     Indication: MYALGIA
  8. ANTIBIOTICS [Concomitant]
     Active Substance: UNSPECIFIED INGREDIENT
     Indication: OROPHARYNGEAL PAIN
     Dosage: UNK
     Route: 065
  9. IBUPROFEN. [Suspect]
     Active Substance: IBUPROFEN
     Indication: PYREXIA

REACTIONS (4)
  - Hepatic enzyme abnormal [Recovered/Resolved]
  - Rash erythematous [Recovered/Resolved]
  - Hypersensitivity [Recovered/Resolved]
  - Leukopenia [Recovered/Resolved]
